FAERS Safety Report 4503638-6 (Version None)
Quarter: 2004Q4

REPORT INFORMATION
  Report Type: 
  Country: None (occurrence: None)
  Receive Date: 20041115
  Receipt Date: 20031028
  Transmission Date: 20050328
  Serious: Yes (Hospitalization)
  Sender: FDA-Public Use
  Company Number: D01200300634

PATIENT
  Age: 62 Year
  Sex: Female

DRUGS (16)
  1. OXALIPLATIN - SOLUTION - 85 MG/M2 [Suspect]
     Dosage: 85 MG/M2 Q2W INTRAVENOUS NOS
     Route: 042
     Dates: start: 20030505, end: 20030506
  2. FLUOROURACIL [Suspect]
     Dosage: 400 MG/M2 AS IV BOLUS THEN 600 MG/M2 AS 22 HOURS CONTINUOUS INFUSION D1-D2 Q2W INTRAVENOUS NOS
     Route: 042
     Dates: start: 20030505, end: 20030506
  3. SR57746 OR PLACEBO - CAPSULE - 1 MG [Suspect]
     Indication: NEUROTOXICITY
     Dosage: 1 MG QD ORAL
     Route: 048
     Dates: start: 20030224, end: 20030511
  4. SR57746 OR PLACEBO - CAPSULE - 1 MG [Suspect]
     Indication: PROPHYLAXIS
     Dosage: 1 MG QD ORAL
     Route: 048
     Dates: start: 20030224, end: 20030511
  5. LEUCOVORIN CALCIUM [Suspect]
     Dosage: 200 MG/M2 AS 2 HOURS INFUSION ON D1-D2 Q2W INTRAVENOUS NOS
     Route: 042
     Dates: start: 20030505, end: 20030506
  6. DIHYDROCODEINE [Concomitant]
  7. PARACETAMOL [Concomitant]
  8. DOTHIEPIN HYDROCHLORIDE [Concomitant]
  9. ONDANSETRON [Concomitant]
  10. DEXAMETHASONE [Concomitant]
  11. CHLORHEXIDINE MOUTHWASH (CHLORHEXIDINE) [Concomitant]
  12. LOPERAMIDE HCL [Concomitant]
  13. DICLOFENAC SODIUM [Concomitant]
  14. RANITIDINE [Concomitant]
  15. DULCOLAX [Concomitant]
  16. LANSOPRAZOLE [Concomitant]

REACTIONS (9)
  - BACTERIA URINE IDENTIFIED [None]
  - DIARRHOEA [None]
  - HAEMOGLOBIN ABNORMAL [None]
  - NEUTROPENIC SEPSIS [None]
  - PATHOGEN RESISTANCE [None]
  - PHLEBITIS [None]
  - PLATELET COUNT DECREASED [None]
  - URINARY TRACT INFECTION [None]
  - WHITE BLOOD CELL COUNT DECREASED [None]
